FAERS Safety Report 6151187-4 (Version None)
Quarter: 2009Q2

REPORT INFORMATION
  Report Type: 
  Country: None (occurrence: None)
  Receive Date: 20090410
  Receipt Date: 20090330
  Transmission Date: 20091009
  Serious: Yes (Hospitalization)
  Sender: FDA-Public Use
  Company Number: JP-JNJFOC-20080301631

PATIENT
  Sex: Male
  Weight: 73 kg

DRUGS (33)
  1. INFLIXIMAB [Suspect]
     Dosage: 10TH DOSE, CONFLICTING DATES REPORTED AS BOTH 05-FEB-2008 AND 15-FEB-2008
     Route: 042
  2. INFLIXIMAB [Suspect]
     Route: 042
  3. INFLIXIMAB [Suspect]
     Route: 042
  4. INFLIXIMAB [Suspect]
     Route: 042
  5. INFLIXIMAB [Suspect]
     Route: 042
  6. INFLIXIMAB [Suspect]
     Route: 042
  7. INFLIXIMAB [Suspect]
     Route: 042
  8. INFLIXIMAB [Suspect]
     Route: 042
  9. INFLIXIMAB [Suspect]
     Route: 042
  10. INFLIXIMAB [Suspect]
     Indication: BEHCET'S SYNDROME
     Route: 042
  11. ANTIHISTAMINES [Concomitant]
     Indication: PROPHYLAXIS
  12. PREDONINE [Concomitant]
     Route: 048
  13. PREDONINE [Concomitant]
     Route: 048
  14. PREDONINE [Concomitant]
     Route: 048
  15. PREDONINE [Concomitant]
     Route: 048
  16. PREDONINE [Concomitant]
     Route: 048
  17. PREDONINE [Concomitant]
     Route: 048
  18. PREDONINE [Concomitant]
     Route: 048
  19. PREDONINE [Concomitant]
     Route: 048
  20. PREDONINE [Concomitant]
     Route: 048
  21. PREDONINE [Concomitant]
     Route: 048
  22. PREDONINE [Concomitant]
     Indication: EYE DISORDER
     Route: 048
  23. PREDONINE [Concomitant]
     Indication: BEHCET'S SYNDROME
     Route: 048
  24. IMURAN [Concomitant]
     Route: 048
  25. IMURAN [Concomitant]
     Indication: PROPHYLAXIS
     Route: 048
  26. PENTASA [Concomitant]
     Route: 048
  27. PENTASA [Concomitant]
     Indication: PROPHYLAXIS
     Route: 048
  28. ALFAROL [Concomitant]
     Indication: PROPHYLAXIS
     Route: 048
  29. TAKEPRON [Concomitant]
     Indication: PROPHYLAXIS
     Route: 048
  30. COLCHICINE [Concomitant]
     Indication: EYE DISORDER
     Route: 048
  31. COLCHICINE [Concomitant]
     Indication: BEHCET'S SYNDROME
     Route: 048
  32. SOLU-MEDROL [Concomitant]
     Indication: EYE DISORDER
     Route: 048
  33. SOLU-MEDROL [Concomitant]
     Indication: BEHCET'S SYNDROME
     Route: 048

REACTIONS (2)
  - ENTERITIS INFECTIOUS [None]
  - INTESTINAL ULCER [None]
